FAERS Safety Report 5795520-1 (Version None)
Quarter: 2008Q2

REPORT INFORMATION
  Report Type: 
  Country: None (occurrence: None)
  Receive Date: 20080630
  Receipt Date: 20080618
  Transmission Date: 20081010
  Serious: Yes (Other)
  Sender: FDA-Public Use
  Company Number: PHHY2008BR06966

PATIENT
  Age: 53 Year
  Sex: Female
  Weight: 64.5 kg

DRUGS (2)
  1. TRILEPTAL [Suspect]
     Indication: BIPOLAR DISORDER
     Dosage: 1 TABLET DAILY
     Route: 048
     Dates: start: 20080425
  2. DEPAKOTE [Concomitant]
     Dosage: 500 MG

REACTIONS (12)
  - ABDOMINAL PAIN [None]
  - ABNORMAL BEHAVIOUR [None]
  - APATHY [None]
  - BALANCE DISORDER [None]
  - CRYING [None]
  - DEPRESSION [None]
  - DIARRHOEA [None]
  - DISTURBANCE IN ATTENTION [None]
  - FEELING ABNORMAL [None]
  - LISTLESS [None]
  - MEMORY IMPAIRMENT [None]
  - NAUSEA [None]
